FAERS Safety Report 25427792 (Version 2)
Quarter: 2025Q2

REPORT INFORMATION
  Report Type: Spontaneous
  Country: NL (occurrence: NL)
  Receive Date: 20250612
  Receipt Date: 20250617
  Transmission Date: 20250717
  Serious: Yes (Other)
  Sender: TEVA
  Company Number: None

PATIENT
  Age: 68 Year
  Sex: Male
  Weight: 75 kg

DRUGS (1)
  1. FREMANEZUMAB [Suspect]
     Active Substance: FREMANEZUMAB
     Indication: Migraine
     Dosage: 1X PER MAAND 225MG, FREMANEZUMAB INJVLST 150MG/ML / AJOVY INJVLST 150MG/ML PEN 1,5ML
     Route: 065
     Dates: start: 20210628

REACTIONS (1)
  - Glaucoma [Not Recovered/Not Resolved]
